FAERS Safety Report 18500641 (Version 1)
Quarter: 2020Q4

REPORT INFORMATION
  Report Type: Spontaneous
  Country: US (occurrence: US)
  Receive Date: 20201112
  Receipt Date: 20201112
  Transmission Date: 20210114
  Serious: Yes (Hospitalization)
  Sender: FDA-Public Use
  Company Number: None

PATIENT
  Age: 51 Year
  Sex: Female

DRUGS (1)
  1. SILDENAFIL CITRATE 20MG AUROBINDO PHARMA [Suspect]
     Active Substance: SILDENAFIL CITRATE
     Indication: PULMONARY ARTERIAL HYPERTENSION
     Route: 048
     Dates: start: 20190207

REACTIONS (6)
  - Disease complication [None]
  - Nerve injury [None]
  - Rib fracture [None]
  - Skin injury [None]
  - Suicide attempt [None]
  - Infection [None]

NARRATIVE: CASE EVENT DATE: 20200928
